FAERS Safety Report 7744214-1 (Version None)
Quarter: 2011Q3

REPORT INFORMATION
  Report Type: 
  Country: None (occurrence: None)
  Receive Date: 20110819
  Receipt Date: 20110623
  Transmission Date: 20111222
  Serious: No
  Sender: FDA-Public Use
  Company Number: 036079

PATIENT
  Age: 12 Year
  Sex: Male

DRUGS (1)
  1. LACOSAMIDE [Suspect]

REACTIONS (1)
  - URTICARIA [None]
